FAERS Safety Report 7637261-1 (Version None)
Quarter: 2011Q3

REPORT INFORMATION
  Report Type: 
  Country: None (occurrence: None)
  Receive Date: 20110726
  Receipt Date: 20110713
  Transmission Date: 20111222
  Serious: Yes (Hospitalization, Congenital Anomaly, Other)
  Sender: FDA-Public Use
  Company Number: US-PFIZER INC-2011089761

PATIENT
  Sex: Female
  Weight: 2.5 kg

DRUGS (6)
  1. ZOLOFT [Suspect]
     Dosage: 150 MG, DAILY
     Route: 064
  2. PRENATAL VITAMINS [Concomitant]
     Dosage: UNK, 1X/DAY
     Route: 064
  3. ZOLOFT [Suspect]
     Indication: DEPRESSION
     Dosage: 25 MG, 1X/DAY EVERY MORNING
     Route: 064
  4. ZOLOFT [Suspect]
     Dosage: 50 MG, 1X/DAY, EVERY MORNING
     Route: 064
  5. CALCIUM CARBONATE/COLECALCIFEROL [Concomitant]
     Dosage: 200 MG, 1X/DAY
     Route: 064
  6. ZOLOFT [Suspect]
     Dosage: 100 MG, 1X/DAY, EVERY MORNING
     Route: 064

REACTIONS (8)
  - DILATATION VENTRICULAR [None]
  - ATRIAL SEPTAL DEFECT [None]
  - MATERNAL EXPOSURE DURING PREGNANCY [None]
  - FALLOT'S TETRALOGY [None]
  - RIGHT ATRIAL DILATATION [None]
  - BUNDLE BRANCH BLOCK RIGHT [None]
  - PULMONARY VALVE INCOMPETENCE [None]
  - RIGHT VENTRICULAR HYPERTROPHY [None]
